FAERS Safety Report 5168448-8 (Version None)
Quarter: 2006Q4

REPORT INFORMATION
  Report Type: 
  Country: None (occurrence: None)
  Receive Date: 20061208
  Receipt Date: 20061128
  Transmission Date: 20070319
  Serious: Yes (Other)
  Sender: FDA-Public Use
  Company Number: CA-ROCHE-472772

PATIENT
  Age: 94 Year
  Sex: Female
  Weight: 52 kg

DRUGS (6)
  1. TAMIFLU [Suspect]
     Indication: DRUG USE FOR UNKNOWN INDICATION
     Route: 048
  2. ASPIRIN [Concomitant]
     Dosage: FORM REPORTED AS CTB.
  3. LACTULOSE [Concomitant]
  4. RANITIDINE [Concomitant]
  5. TYLENOL W/ CODEINE NO. 2 [Concomitant]
  6. MEPROLOL [Concomitant]

REACTIONS (2)
  - CONFUSIONAL STATE [None]
  - CREATININE RENAL CLEARANCE DECREASED [None]
